FAERS Safety Report 15907915 (Version 1)
Quarter: 2019Q1

REPORT INFORMATION
  Report Type: Spontaneous
  Country: US (occurrence: US)
  Receive Date: 20190111
  Receipt Date: 20190111
  Transmission Date: 20190417
  Serious: No
  Sender: FDA-Public Use
  Company Number: None

PATIENT
  Age: 68 Year
  Sex: Female

DRUGS (1)
  1. REPATHA [Suspect]
     Active Substance: EVOLOCUMAB
     Indication: TYPE IIA HYPERLIPIDAEMIA
     Dosage: OTHER
     Route: 058
     Dates: start: 201708

REACTIONS (2)
  - Incorrect dose administered [None]
  - Wrong technique in device usage process [None]

NARRATIVE: CASE EVENT DATE: 20190111
